FAERS Safety Report 5934755-1 (Version None)
Quarter: 2008Q4

REPORT INFORMATION
  Report Type: 
  Country: None (occurrence: None)
  Receive Date: 20081029
  Receipt Date: 20081020
  Transmission Date: 20090506
  Serious: Yes (Other)
  Sender: FDA-Public Use
  Company Number: UG-B.I. PHARMACEUTICALS,INC./RIDGEFIELD-2008-DE-06205GD

PATIENT

DRUGS (4)
  1. NEVIRAPINE [Suspect]
     Indication: PROPHYLAXIS AGAINST HIV INFECTION
     Route: 064
  2. NEVIRAPINE [Suspect]
     Indication: HUMAN IMMUNODEFICIENCY VIRUS TRANSMISSION
  3. NEVIRAPINE [Suspect]
  4. MULTI-VITAMINS [Concomitant]

REACTIONS (3)
  - DRUG RESISTANCE [None]
  - HIV INFECTION [None]
  - VIRAL MUTATION IDENTIFIED [None]
